FAERS Safety Report 15311699 (Version 1)
Quarter: 2018Q3

REPORT INFORMATION
  Report Type: Spontaneous
  Country: US (occurrence: US)
  Receive Date: 20180814
  Receipt Date: 20180814
  Transmission Date: 20181010
  Serious: Yes (Disabling)
  Sender: FDA-Public Use
  Company Number: None

PATIENT
  Age: 5 Year
  Sex: Female
  Weight: 16.2 kg

DRUGS (5)
  1. SYMBICORT [Concomitant]
     Active Substance: BUDESONIDE\FORMOTEROL FUMARATE DIHYDRATE
  2. FLOVENT HFA [Suspect]
     Active Substance: FLUTICASONE PROPIONATE
     Indication: ASTHMA
     Route: 055
     Dates: start: 20170901, end: 20180718
  3. HYDROCORTISONE. [Concomitant]
     Active Substance: HYDROCORTISONE
  4. SPACER [Concomitant]
  5. PERIACTIN [Concomitant]
     Active Substance: CYPROHEPTADINE HYDROCHLORIDE

REACTIONS (7)
  - Vomiting [None]
  - Adrenal insufficiency [None]
  - Malaise [None]
  - Nausea [None]
  - Headache [None]
  - Epistaxis [None]
  - Weight decreased [None]

NARRATIVE: CASE EVENT DATE: 20180601
